FAERS Safety Report 18986695 (Version 1)
Quarter: 2021Q1

REPORT INFORMATION
  Report Type: Spontaneous
  Country: US (occurrence: US)
  Receive Date: 20210308
  Receipt Date: 20210308
  Transmission Date: 20210420
  Serious: No
  Sender: FDA-Public Use
  Company Number: None

PATIENT
  Age: 32 Year
  Sex: Male
  Weight: 104.33 kg

DRUGS (1)
  1. VANCOMYCIN (VANCOMYCIN HCL 1.5GM/VIL INJ) [Suspect]
     Active Substance: VANCOMYCIN
     Indication: CELLULITIS
     Route: 058
     Dates: start: 20210208, end: 20210208

REACTIONS (1)
  - Erythema multiforme [None]

NARRATIVE: CASE EVENT DATE: 20210208
